FAERS Safety Report 16402204 (Version 4)
Quarter: 2019Q3

REPORT INFORMATION
  Report Type: Spontaneous
  Country: US (occurrence: US)
  Receive Date: 20190607
  Receipt Date: 20190719
  Transmission Date: 20191004
  Serious: Yes (Death, Other)
  Sender: FDA-Public Use
  Company Number: US-ASTRAZENECA-2018SF14888

PATIENT
  Sex: Male

DRUGS (32)
  1. PREVACID [Suspect]
     Active Substance: LANSOPRAZOLE
     Indication: GASTROOESOPHAGEAL REFLUX DISEASE
     Route: 065
     Dates: start: 20060803, end: 20100627
  2. PREVACID [Suspect]
     Active Substance: LANSOPRAZOLE
     Indication: GASTROOESOPHAGEAL REFLUX DISEASE
     Dosage: GENERIC (LANSOPRAZOLE)
     Route: 065
     Dates: start: 20060803, end: 20170601
  3. ALBUTEROL. [Concomitant]
     Active Substance: ALBUTEROL
  4. JANUVIA [Concomitant]
     Active Substance: SITAGLIPTIN PHOSPHATE
  5. NOVOLOG [Concomitant]
     Active Substance: INSULIN ASPART
  6. KETOCONAZOLE. [Concomitant]
     Active Substance: KETOCONAZOLE
  7. METOPROLOL. [Concomitant]
     Active Substance: METOPROLOL
     Indication: HYPERTENSION
     Dates: start: 20130316, end: 20160203
  8. METFORMIN [Concomitant]
     Active Substance: METFORMIN HYDROCHLORIDE
     Indication: DIABETES MELLITUS
     Dates: start: 20130316, end: 20151012
  9. PROTONIX [Suspect]
     Active Substance: PANTOPRAZOLE SODIUM
     Indication: GASTROOESOPHAGEAL REFLUX DISEASE
     Route: 048
     Dates: start: 20100206, end: 20100210
  10. AMLODIPINE [Concomitant]
     Active Substance: AMLODIPINE BESYLATE
     Indication: HYPERTENSION
     Dates: start: 20130617, end: 20170530
  11. DOXYCYCLINE. [Concomitant]
     Active Substance: DOXYCYCLINE
  12. SPIRIVA [Concomitant]
     Active Substance: TIOTROPIUM BROMIDE MONOHYDRATE
  13. PROTONIX [Suspect]
     Active Substance: PANTOPRAZOLE SODIUM
     Indication: GASTROOESOPHAGEAL REFLUX DISEASE
     Route: 065
     Dates: start: 200608, end: 201012
  14. LYRICA [Concomitant]
     Active Substance: PREGABALIN
  15. WALGREENS [Concomitant]
  16. CELEBREX [Concomitant]
     Active Substance: CELECOXIB
  17. HYDROCODONE [Concomitant]
     Active Substance: HYDROCODONE
  18. TRAMADOL. [Concomitant]
     Active Substance: TRAMADOL
     Indication: PAIN
     Dates: start: 20130313, end: 20170601
  19. PREVACID [Suspect]
     Active Substance: LANSOPRAZOLE
     Indication: GASTROOESOPHAGEAL REFLUX DISEASE
     Route: 048
     Dates: start: 20130225
  20. ADVAIR HFA [Concomitant]
     Active Substance: FLUTICASONE PROPIONATE\SALMETEROL XINAFOATE
  21. HUMULIN NOS [Concomitant]
     Active Substance: INSULIN HUMAN
  22. PREVACID [Suspect]
     Active Substance: LANSOPRAZOLE
     Indication: GASTROOESOPHAGEAL REFLUX DISEASE
     Route: 065
     Dates: start: 20060803, end: 20091109
  23. TORSEMIDE. [Concomitant]
     Active Substance: TORSEMIDE
     Indication: OEDEMA
     Dates: start: 20130313, end: 20160702
  24. CIPROFLOXACIN. [Concomitant]
     Active Substance: CIPROFLOXACIN
  25. PRILOSEC [Suspect]
     Active Substance: OMEPRAZOLE MAGNESIUM
     Route: 048
     Dates: start: 200608, end: 201012
  26. AZITHROMYCIN ANHYDROUS. [Concomitant]
     Active Substance: AZITHROMYCIN ANHYDROUS
  27. PREVACID [Suspect]
     Active Substance: LANSOPRAZOLE
     Indication: GASTROOESOPHAGEAL REFLUX DISEASE
     Route: 065
     Dates: start: 200608, end: 201012
  28. PROTONIX [Suspect]
     Active Substance: PANTOPRAZOLE SODIUM
     Indication: GASTROOESOPHAGEAL REFLUX DISEASE
     Dosage: GENERIC (PANTOPRAZOLE)
     Route: 065
     Dates: start: 20100212, end: 20101203
  29. PROTONIX [Suspect]
     Active Substance: PANTOPRAZOLE SODIUM
     Indication: GASTROOESOPHAGEAL REFLUX DISEASE
     Route: 065
     Dates: start: 20100212, end: 20101203
  30. DIAZEPAM. [Concomitant]
     Active Substance: DIAZEPAM
  31. LISINOPRIL. [Concomitant]
     Active Substance: LISINOPRIL
  32. HYDROCHLOROTHIAZIDE. [Concomitant]
     Active Substance: HYDROCHLOROTHIAZIDE

REACTIONS (6)
  - Chronic kidney disease [Not Recovered/Not Resolved]
  - Renal injury [Unknown]
  - Dyspepsia [Unknown]
  - End stage renal disease [Unknown]
  - Acute kidney injury [Not Recovered/Not Resolved]
  - Tubulointerstitial nephritis [Unknown]
